FAERS Safety Report 24949449 (Version 1)
Quarter: 2025Q1

REPORT INFORMATION
  Report Type: Other
  Country: JP (occurrence: JP)
  Receive Date: 20250210
  Receipt Date: 20250210
  Transmission Date: 20250408
  Serious: Yes (Hospitalization, Other)
  Sender: Kanchan Healthcare
  Company Number: JP-Kanchan Healthcare INC-2170861

PATIENT
  Age: 72 Year
  Sex: Female

DRUGS (6)
  1. DEXAMETHASONE [Suspect]
     Active Substance: DEXAMETHASONE
     Indication: Breast cancer
  2. EPIRUBICIN HYDROCHLORIDE [Suspect]
     Active Substance: EPIRUBICIN HYDROCHLORIDE
  3. PEGFILGRASTIM [Concomitant]
     Active Substance: PEGFILGRASTIM
  4. OLANZAPINE [Concomitant]
     Active Substance: OLANZAPINE
  5. APREPITANT [Concomitant]
     Active Substance: APREPITANT
  6. CYCLOPHOSPHAMIDE [Suspect]
     Active Substance: CYCLOPHOSPHAMIDE

REACTIONS (3)
  - Organising pneumonia [Recovered/Resolved]
  - Product use in unapproved indication [Unknown]
  - Pneumocystis jirovecii pneumonia [Recovered/Resolved]
